FAERS Safety Report 7178155-8 (Version None)
Quarter: 2010Q4

REPORT INFORMATION
  Report Type: 
  Country: None (occurrence: None)
  Receive Date: 20101220
  Receipt Date: 20101129
  Transmission Date: 20110411
  Serious: Yes (Hospitalization)
  Sender: FDA-Public Use
  Company Number: B0689627A

PATIENT
  Age: 48 Year
  Sex: Male

DRUGS (4)
  1. CARVEDILOL [Suspect]
     Route: 065
  2. OLMESARTAN MEDOXOMIL [Suspect]
  3. NIFEDIPINE [Suspect]
     Route: 065
  4. LISINOPRIL [Suspect]

REACTIONS (4)
  - MULTI-ORGAN FAILURE [None]
  - OVERDOSE [None]
  - RENAL IMPAIRMENT [None]
  - SHOCK [None]
